FAERS Safety Report 5514115-8 (Version None)
Quarter: 2007Q4

REPORT INFORMATION
  Report Type: 
  Country: None (occurrence: None)
  Receive Date: 20071106
  Receipt Date: 20070816
  Transmission Date: 20080405
  Serious: Yes (Other)
  Sender: FDA-Public Use
  Company Number: US200708003488

PATIENT
  Age: 38 Year
  Sex: Male

DRUGS (4)
  1. ZYPREXA [Suspect]
  2. PROZAC [Suspect]
  3. AMBIEN [Concomitant]
  4. WELLBUTRIN [Concomitant]

REACTIONS (5)
  - DYSARTHRIA [None]
  - MIOSIS [None]
  - MOVEMENT DISORDER [None]
  - MUSCLE TWITCHING [None]
  - ROAD TRAFFIC ACCIDENT [None]
